FAERS Safety Report 20654874 (Version 1)
Quarter: 2022Q1

REPORT INFORMATION
  Report Type: Spontaneous
  Country: US (occurrence: None)
  Receive Date: 20220329
  Receipt Date: 20220329
  Transmission Date: 20220423
  Serious: No
  Sender: FDA-Public Use
  Company Number: None

PATIENT
  Age: 50 Year
  Sex: Female

DRUGS (3)
  1. HUMIRA [Suspect]
     Active Substance: ADALIMUMAB
     Indication: Rheumatoid arthritis
     Dosage: OTHER FREQUENCY : OTHER;?
     Route: 058
     Dates: start: 20171101, end: 20211101
  2. PREDNISONE [Concomitant]
     Active Substance: PREDNISONE
  3. HYDROXYCHLOROQUINE 200MG EFFEXOR XR 37.5MG [Concomitant]

REACTIONS (1)
  - Cutaneous lupus erythematosus [None]

NARRATIVE: CASE EVENT DATE: 20211101
